FAERS Safety Report 9278818 (Version 1)
Quarter: 2013Q2

REPORT INFORMATION
  Report Type: Spontaneous
  Country: CH (occurrence: CH)
  Receive Date: 20130508
  Receipt Date: 20130508
  Transmission Date: 20140414
  Serious: Yes (Hospitalization)
  Sender: FDA-Public Use
  Company Number: PHHY2013CH043464

PATIENT
  Age: 95 Year
  Sex: Male
  Weight: 66.7 kg

DRUGS (9)
  1. METFIN [Suspect]
     Dosage: 850 MG, BID
     Route: 048
     Dates: end: 20130320
  2. DIOVAN [Suspect]
     Dosage: 80 MG, QD
     Route: 048
  3. ALDACTONE [Suspect]
     Dosage: 50 MG, QD
     Route: 048
  4. ASPIRIN CARDIO [Concomitant]
     Dosage: 100 MG, QD
     Route: 048
  5. TOREM [Concomitant]
     Dosage: 20 MG, QD
     Route: 048
  6. DIGOXIN [Concomitant]
     Dosage: 0.25 MG, QW3
     Route: 048
  7. PANTOZOL [Concomitant]
     Dosage: 20 MG, QD
     Route: 048
  8. DISTRANEURIN [Concomitant]
     Route: 048
  9. METOLAZON [Concomitant]
     Dosage: 10 MG, QD
     Route: 048

REACTIONS (1)
  - Renal failure acute [Recovering/Resolving]
